FAERS Safety Report 6575069-9 (Version None)
Quarter: 2010Q1

REPORT INFORMATION
  Report Type: 
  Country: None (occurrence: None)
  Receive Date: 20100209
  Receipt Date: 20100129
  Transmission Date: 20100710
  Serious: Yes (Hospitalization, Other)
  Sender: FDA-Public Use
  Company Number: US-AMGEN-QUU389397

PATIENT
  Sex: Female

DRUGS (2)
  1. ENBREL [Suspect]
     Indication: RHEUMATOID ARTHRITIS
     Route: 058
     Dates: start: 20010901
  2. VITAMIN TAB [Concomitant]

REACTIONS (7)
  - APHONIA [None]
  - FACE PRESENTATION [None]
  - INFLUENZA [None]
  - PUERPERAL PYREXIA [None]
  - RHEUMATOID ARTHRITIS [None]
  - SMEAR CERVIX ABNORMAL [None]
  - VAGINAL LACERATION [None]
